FAERS Safety Report 11194242 (Version 1)
Quarter: 2015Q2

REPORT INFORMATION
  Report Type: Report from Study
  Country: JP (occurrence: JP)
  Receive Date: 20150616
  Receipt Date: 20150616
  Transmission Date: 20150821
  Serious: Yes (Hospitalization)
  Sender: FDA-Public Use
  Company Number: PHHY2013JP021904

PATIENT
  Age: 26 Year
  Sex: Female
  Weight: 76 kg

DRUGS (22)
  1. IMUSERA [Suspect]
     Active Substance: FINGOLIMOD HYDROCHLORIDE
     Dosage: 0.5 MG, QD
     Route: 048
     Dates: start: 20130530
  2. PRIDOL [Concomitant]
     Active Substance: METHYLPREDNISOLONE SODIUM SUCCINATE
     Dosage: 1 G, QD
     Route: 051
     Dates: start: 20140225, end: 20140227
  3. PREDONINE [Concomitant]
     Active Substance: PREDNISOLONE\PREDNISOLONE ACETATE\PREDNISOLONE SODIUM SUCCINATE
     Dosage: 20 MG, QD
     Route: 048
     Dates: start: 20130624, end: 20130626
  4. PRIDOL [Concomitant]
     Active Substance: METHYLPREDNISOLONE SODIUM SUCCINATE
     Dosage: 1 G, QD
     Route: 051
     Dates: start: 20130611, end: 20130613
  5. PRIDOL [Concomitant]
     Active Substance: METHYLPREDNISOLONE SODIUM SUCCINATE
     Dosage: 1 G, QD
     Route: 051
     Dates: start: 20140707, end: 20140709
  6. PREDONINE [Concomitant]
     Active Substance: PREDNISOLONE\PREDNISOLONE ACETATE\PREDNISOLONE SODIUM SUCCINATE
     Dosage: 15 MG, QD
     Route: 048
     Dates: start: 20130627, end: 20130629
  7. PREDONINE [Concomitant]
     Active Substance: PREDNISOLONE\PREDNISOLONE ACETATE\PREDNISOLONE SODIUM SUCCINATE
     Dosage: 10 MG, QD
     Route: 048
     Dates: start: 20130630, end: 20130706
  8. AVONEX [Concomitant]
     Active Substance: INTERFERON BETA-1A
     Indication: MULTIPLE SCLEROSIS
     Dosage: 30 UG, PERWEEK
     Route: 030
     Dates: start: 20110927, end: 20120723
  9. IMUSERA [Suspect]
     Active Substance: FINGOLIMOD HYDROCHLORIDE
     Dosage: 0.5 MG, QOD
     Route: 048
     Dates: start: 20130516, end: 20130529
  10. PRIDOL [Concomitant]
     Active Substance: METHYLPREDNISOLONE SODIUM SUCCINATE
     Dosage: 1 G, QD
     Route: 051
     Dates: start: 20140714, end: 20140716
  11. ALESION [Concomitant]
     Active Substance: EPINASTINE HYDROCHLORIDE
     Indication: PRURITUS
     Dosage: 20 MG, QD
     Route: 048
  12. PREDONINE [Concomitant]
     Active Substance: PREDNISOLONE\PREDNISOLONE ACETATE\PREDNISOLONE SODIUM SUCCINATE
     Indication: MULTIPLE SCLEROSIS
     Dosage: 30 MG, QD
     Route: 048
     Dates: start: 20130614, end: 20130617
  13. MAXALT [Suspect]
     Active Substance: RIZATRIPTAN BENZOATE
     Indication: MIGRAINE
     Dosage: 10 MG, QD (PRN)
     Route: 048
     Dates: start: 20121117
  14. PRIDOL [Concomitant]
     Active Substance: METHYLPREDNISOLONE SODIUM SUCCINATE
     Indication: MULTIPLE SCLEROSIS
     Dosage: 1 G, QD
     Route: 051
     Dates: start: 20110913, end: 20110915
  15. PRIDOL [Concomitant]
     Active Substance: METHYLPREDNISOLONE SODIUM SUCCINATE
     Dosage: 1 G, QD
     Route: 051
     Dates: start: 20110920, end: 20110922
  16. PRIDOL [Concomitant]
     Active Substance: METHYLPREDNISOLONE SODIUM SUCCINATE
     Dosage: 1 G, QD
     Route: 051
     Dates: start: 20120407, end: 20120409
  17. IMUSERA [Suspect]
     Active Substance: FINGOLIMOD HYDROCHLORIDE
     Indication: MULTIPLE SCLEROSIS
     Dosage: 0.5 MG, QD
     Route: 048
     Dates: start: 20120731, end: 20130515
  18. PRIDOL [Concomitant]
     Active Substance: METHYLPREDNISOLONE SODIUM SUCCINATE
     Dosage: 1 G, QD
     Route: 051
     Dates: start: 20140219, end: 20140221
  19. PREDONINE [Concomitant]
     Active Substance: PREDNISOLONE\PREDNISOLONE ACETATE\PREDNISOLONE SODIUM SUCCINATE
     Dosage: 30 MG, QD
     Route: 048
     Dates: start: 20130621, end: 20130623
  20. PRIDOL [Concomitant]
     Active Substance: METHYLPREDNISOLONE SODIUM SUCCINATE
     Dosage: 1 G, QD
     Route: 051
     Dates: start: 20120628, end: 20120630
  21. PRIDOL [Concomitant]
     Active Substance: METHYLPREDNISOLONE SODIUM SUCCINATE
     Dosage: 1 G, QD
     Route: 051
     Dates: start: 20120918, end: 20120920
  22. PRIDOL [Concomitant]
     Active Substance: METHYLPREDNISOLONE SODIUM SUCCINATE
     Dosage: 1 G, QD
     Route: 051
     Dates: start: 20130618, end: 20130620

REACTIONS (8)
  - Aspartate aminotransferase increased [None]
  - Alanine aminotransferase increased [None]
  - Neutrophil percentage increased [None]
  - Hepatic function abnormal [Not Recovered/Not Resolved]
  - Gamma-glutamyltransferase increased [None]
  - Multiple sclerosis relapse [Recovering/Resolving]
  - White blood cell count decreased [None]
  - Lymphocyte percentage decreased [None]

NARRATIVE: CASE EVENT DATE: 20120915
